FAERS Safety Report 4555942-3 (Version None)
Quarter: 2005Q1

REPORT INFORMATION
  Report Type: 
  Country: None (occurrence: None)
  Receive Date: 20050112
  Receipt Date: 20040419
  Transmission Date: 20050727
  Serious: Yes (Hospitalization)
  Sender: FDA-Public Use
  Company Number: 364966

PATIENT
  Age: 91 Year
  Sex: Male

DRUGS (1)
  1. VESANOID [Suspect]
     Indication: ACUTE PROMYELOCYTIC LEUKAEMIA
     Dosage: 40 MG    2 PER DAY     ORAL
     Route: 048
     Dates: start: 20040218

REACTIONS (8)
  - DIARRHOEA [None]
  - LUNG INFILTRATION [None]
  - MEDICATION ERROR [None]
  - NEUTROPENIA [None]
  - NO ADVERSE EFFECT [None]
  - PLEURAL EFFUSION [None]
  - PYREXIA [None]
  - RETINOIC ACID SYNDROME [None]
